FAERS Safety Report 6307123-0 (Version None)
Quarter: 2009Q3

REPORT INFORMATION
  Report Type: 
  Country: None (occurrence: None)
  Receive Date: 20090812
  Receipt Date: 20090810
  Transmission Date: 20100115
  Serious: Yes (Hospitalization, Other)
  Sender: FDA-Public Use
  Company Number: IT-GILEAD-2009-0022895

PATIENT
  Sex: Male

DRUGS (10)
  1. TRUVADA [Suspect]
     Indication: HIV INFECTION
     Route: 048
     Dates: start: 20081016, end: 20090625
  2. VIREAD [Suspect]
     Indication: HIV INFECTION
     Dates: start: 20040607, end: 20060531
  3. TELZIR [Concomitant]
     Indication: HIV INFECTION
     Route: 048
     Dates: start: 20081016, end: 20090625
  4. NORVIR [Concomitant]
     Indication: HIV INFECTION
     Route: 048
     Dates: start: 20081016, end: 20090707
  5. VIDEX [Concomitant]
     Indication: HIV INFECTION
     Dates: start: 20060531, end: 20081016
  6. VIDEX [Concomitant]
     Dates: start: 20040607, end: 20060531
  7. EPIVIR [Concomitant]
     Indication: HIV INFECTION
     Dates: start: 20060531, end: 20081016
  8. EPIVIR [Concomitant]
     Dates: start: 20020522, end: 20040607
  9. SUSTIVA [Concomitant]
     Indication: HIV INFECTION
     Dates: start: 20040928, end: 20081016
  10. SUSTIVA [Concomitant]
     Dates: start: 20040607, end: 20040928

REACTIONS (3)
  - CD4 LYMPHOCYTES DECREASED [None]
  - DRUG INEFFECTIVE [None]
  - OEDEMATOUS PANCREATITIS [None]
